FAERS Safety Report 23993749 (Version 1)
Quarter: 2024Q2

REPORT INFORMATION
  Report Type: Spontaneous
  Country: US (occurrence: US)
  Receive Date: 20240620
  Receipt Date: 20240620
  Transmission Date: 20240716
  Serious: Yes (Hospitalization, Other)
  Sender: FDA-Public Use
  Company Number: US-SUN PHARMACEUTICAL INDUSTRIES LTD-2024R1-451437

PATIENT
  Age: 42 Year
  Sex: Female

DRUGS (3)
  1. NOREPINEPHRINE [Suspect]
     Active Substance: NOREPINEPHRINE\NOREPINEPHRINE BITARTRATE
     Indication: Blood pressure management
     Dosage: 0.1MCG/KG/MINUTE
     Route: 065
  2. BUPIVACAINE [Suspect]
     Active Substance: BUPIVACAINE
     Indication: Anaesthesia procedure
     Dosage: 5 MILLIGRAM
     Route: 008
  3. DIAMORPHINE [Suspect]
     Active Substance: DIAMORPHINE
     Indication: Anaesthesia
     Route: 008

REACTIONS (5)
  - Exposure during pregnancy [Unknown]
  - Cardiogenic shock [Unknown]
  - Live birth [Unknown]
  - Acute kidney injury [Unknown]
  - Bacteraemia [Unknown]
